FAERS Safety Report 7560567-1 (Version None)
Quarter: 2011Q2

REPORT INFORMATION
  Report Type: 
  Country: None (occurrence: None)
  Receive Date: 20110621
  Receipt Date: 20100628
  Transmission Date: 20111010
  Serious: No
  Sender: FDA-Public Use
  Company Number: US-ASTRAZENECA-2010SE30146

PATIENT
  Sex: Female
  Weight: 81.6 kg

DRUGS (9)
  1. ENTOCORT EC [Suspect]
     Indication: COLITIS ULCERATIVE
     Route: 048
     Dates: start: 20100601
  2. ENTOCORT EC [Interacting]
     Dosage: 3 MG ONCE OR TWICE DAILY
     Route: 048
  3. ENTOCORT EC [Interacting]
     Route: 048
  4. ENTOCORT EC [Interacting]
     Route: 048
  5. RELISTOR [Concomitant]
  6. LIALDA [Concomitant]
  7. ENTOCORT EC [Interacting]
     Dosage: 3 MG ONCE OR TWICE DAILY
     Route: 048
  8. SUBOXONE [Interacting]
     Route: 065
  9. ENTOCORT EC [Interacting]
     Indication: GASTROENTERITIS EOSINOPHILIC
     Route: 048
     Dates: start: 20100601

REACTIONS (2)
  - CONSTIPATION [None]
  - DRUG INTERACTION [None]
